FAERS Safety Report 14214778 (Version 1)
Quarter: 2017Q4

REPORT INFORMATION
  Report Type: Spontaneous
  Country: US (occurrence: US)
  Receive Date: 20171122
  Receipt Date: 20171122
  Transmission Date: 20180321
  Serious: No
  Sender: FDA-Public Use
  Company Number: US-ROCHE-1881531

PATIENT
  Sex: Female
  Weight: 83.99 kg

DRUGS (2)
  1. TAMOXIFEN [Concomitant]
     Active Substance: TAMOXIFEN
     Indication: HER-2 POSITIVE BREAST CANCER
     Dosage: NO
     Route: 065
  2. HERCEPTIN [Suspect]
     Active Substance: TRASTUZUMAB
     Indication: HER-2 POSITIVE BREAST CANCER
     Route: 065
     Dates: start: 2015, end: 2015

REACTIONS (5)
  - Dysstasia [Unknown]
  - Pain in extremity [Unknown]
  - Muscle tightness [Unknown]
  - Muscular weakness [Unknown]
  - Amnesia [Unknown]

NARRATIVE: CASE EVENT DATE: 2015
